FAERS Safety Report 23526325 (Version 1)
Quarter: 2024Q1

REPORT INFORMATION
  Report Type: Report from Study
  Country: FR (occurrence: FR)
  Receive Date: 20240215
  Receipt Date: 20240215
  Transmission Date: 20240409
  Serious: Yes (Death, Hospitalization, Other)
  Sender: FDA-Public Use
  Company Number: FR-CELLTRION INC.-2023FR024028

PATIENT

DRUGS (4)
  1. BEVACIZUMAB [Suspect]
     Active Substance: BEVACIZUMAB
     Indication: Non-small cell lung cancer
     Dosage: 15 MILLIGRAM/KILOGRAM EVERY 3 WEEKS (DATE OF LAST ADMINISTRATION OF STUDY TREATMENT 16/OCT/2023)
     Route: 065
     Dates: start: 20230725
  2. ATEZOLIZUMAB [Suspect]
     Active Substance: ATEZOLIZUMAB
     Indication: Non-small cell lung cancer
     Dosage: 1200 MILLIGRAM EVERY 3 WEEKS (DATE OF LAST ADMINISTRATION OF STUDY TREATMENT 16/OCT/2023)
     Route: 042
     Dates: start: 20230725
  3. PACLITAXEL [Suspect]
     Active Substance: PACLITAXEL
     Indication: Non-small cell lung cancer
     Dosage: 200 MG/M2 EVERY 3 WEEKS (DATE OF LAST ADMINISTRATION OF STUDY TREATMENT 16/OCT/2023)
     Route: 065
     Dates: start: 20230725
  4. LYRICA [Concomitant]
     Active Substance: PREGABALIN
     Dosage: 50 MG

REACTIONS (4)
  - Death [Fatal]
  - General physical health deterioration [Not Recovered/Not Resolved]
  - Decreased appetite [Fatal]
  - Fatigue [Fatal]

NARRATIVE: CASE EVENT DATE: 20231103
